FAERS Safety Report 7402411-9 (Version None)
Quarter: 2011Q2

REPORT INFORMATION
  Report Type: 
  Country: None (occurrence: None)
  Receive Date: 20110408
  Receipt Date: 20110329
  Transmission Date: 20111010
  Serious: Yes (Other)
  Sender: FDA-Public Use
  Company Number: NL-PFIZER INC-2011030012

PATIENT
  Sex: Female
  Weight: 69 kg

DRUGS (1)
  1. EFFEXOR XR [Suspect]
     Indication: DEPRESSION
     Dosage: 225
     Route: 048
     Dates: start: 20100115, end: 20110301

REACTIONS (2)
  - AMNESIA [None]
  - COGNITIVE DISORDER [None]
